FAERS Safety Report 14637451 (Version 1)
Quarter: 2018Q1

REPORT INFORMATION
  Report Type: Spontaneous
  Country: US (occurrence: US)
  Receive Date: 20180314
  Receipt Date: 20180314
  Transmission Date: 20180509
  Serious: No
  Sender: FDA-Public Use
  Company Number: US-ALLERGAN-1708716US

PATIENT
  Sex: Female

DRUGS (1)
  1. HYDROCODONE BITARTRATE;ACETAMINOPHEN UNK [Suspect]
     Active Substance: ACETAMINOPHEN\HYDROCODONE BITARTRATE
     Indication: PRODUCT USED FOR UNKNOWN INDICATION
     Dosage: 2 WHITE PILLS, SINGLE
     Route: 048

REACTIONS (4)
  - Incorrect product formulation administered [Unknown]
  - Hypersensitivity [Unknown]
  - Product packaging issue [Unknown]
  - Haematemesis [Unknown]
